FAERS Safety Report 8235639-9 (Version None)
Quarter: 2012Q1

REPORT INFORMATION
  Report Type: 
  Country: None (occurrence: None)
  Receive Date: 20120323
  Receipt Date: 20120308
  Transmission Date: 20120608
  Serious: Yes (Hospitalization, Other)
  Sender: FDA-Public Use
  Company Number: DSJ-2012-04639

PATIENT
  Age: 60 Year
  Sex: Female

DRUGS (4)
  1. ACETYLSALICYLIC ACID SRT [Concomitant]
  2. BENICAR [Suspect]
     Indication: HYPERTENSION
     Dosage: 20 MG (20 MG, 1 IN 1 D) , PER ORAL
     Route: 048
     Dates: start: 20100101, end: 20120307
  3. AMLODIPINE [Concomitant]
  4. SIMVASTATIN [Concomitant]

REACTIONS (2)
  - TENDON DISORDER [None]
  - INFARCTION [None]
